FAERS Safety Report 21627417 (Version 1)
Quarter: 2022Q4

REPORT INFORMATION
  Report Type: Spontaneous
  Country: BR (occurrence: BR)
  Receive Date: 20221122
  Receipt Date: 20221122
  Transmission Date: 20230113
  Serious: Yes (Hospitalization)
  Sender: FDA-Public Use
  Company Number: BR-AstraZeneca-2022A373048

PATIENT
  Age: 87 Year
  Sex: Female

DRUGS (5)
  1. METOPROLOL SUCCINATE [Suspect]
     Active Substance: METOPROLOL SUCCINATE
     Indication: Arrhythmia
     Dosage: ONCE A DAY
     Route: 048
     Dates: start: 202203, end: 202208
  2. METOPROLOL SUCCINATE [Suspect]
     Active Substance: METOPROLOL SUCCINATE
     Indication: Cardiac disorder
  3. AMIODARONE [Concomitant]
     Active Substance: AMIODARONE
     Indication: Product used for unknown indication
     Dosage: NOT PROVIDED.
  4. ALOGLIPTIN BENZOATE\PIOGLITAZONE HYDROCHLORIDE [Concomitant]
     Active Substance: ALOGLIPTIN BENZOATE\PIOGLITAZONE HYDROCHLORIDE
     Indication: Product used for unknown indication
     Dosage: NOT PROVIDED.
  5. XAREL [Concomitant]
     Indication: Product used for unknown indication
     Dosage: NOT PROVIDED.

REACTIONS (4)
  - Hypersensitivity [Recovered/Resolved]
  - Skin lesion [Recovered/Resolved]
  - Pruritus [Recovered/Resolved]
  - Rash macular [Recovered/Resolved]

NARRATIVE: CASE EVENT DATE: 20220301
